FAERS Safety Report 18485441 (Version 1)
Quarter: 2020Q4

REPORT INFORMATION
  Report Type: Spontaneous
  Country: RU (occurrence: RU)
  Receive Date: 20201110
  Receipt Date: 20201110
  Transmission Date: 20210114
  Serious: Yes (Other)
  Sender: FDA-Public Use
  Company Number: RU-AMGEN-RUSSP2020178739

PATIENT
  Age: 65 Year
  Sex: Female

DRUGS (2)
  1. PROLIA [Suspect]
     Active Substance: DENOSUMAB
     Indication: HYPERCALCAEMIA
     Dosage: 60 MILLIGRAM
     Route: 058
  2. CINACALCET HCL [Suspect]
     Active Substance: CINACALCET HYDROCHLORIDE
     Indication: HYPERPARATHYROIDISM PRIMARY
     Route: 065

REACTIONS (4)
  - Hungry bone syndrome [Unknown]
  - Off label use [Unknown]
  - Blood parathyroid hormone increased [Unknown]
  - Drug ineffective [Unknown]
